FAERS Safety Report 4734622-5 (Version None)
Quarter: 2005Q3

REPORT INFORMATION
  Report Type: 
  Country: None (occurrence: None)
  Receive Date: 20050802
  Receipt Date: 20050720
  Transmission Date: 20060218
  Serious: Yes (Other)
  Sender: FDA-Public Use
  Company Number: 2005BI008643

PATIENT
  Age: 65 Year
  Sex: Male

DRUGS (7)
  1. AVONEX [Suspect]
     Indication: MULTIPLE SCLEROSIS
     Dosage: 30 UG QW IM
     Route: 030
     Dates: start: 20041001
  2. GLUCOSAMINE [Concomitant]
  3. ALEVE [Concomitant]
  4. NEURONTIN [Concomitant]
  5. CASODEX [Concomitant]
  6. MULTI-VITAMIN [Concomitant]
  7. TYLENOL (CAPLET) [Concomitant]

REACTIONS (2)
  - METASTASES TO BONE [None]
  - PROSTATE CANCER METASTATIC [None]
